FAERS Safety Report 6412536-2 (Version None)
Quarter: 2009Q4

REPORT INFORMATION
  Report Type: 
  Country: None (occurrence: None)
  Receive Date: 20091023
  Receipt Date: 20090827
  Transmission Date: 20100525
  Serious: Yes (Hospitalization)
  Sender: FDA-Public Use
  Company Number: US-BRISTOL-MYERS SQUIBB COMPANY-14756787

PATIENT
  Age: 67 Year
  Sex: Male

DRUGS (3)
  1. KENALOG-40 [Suspect]
     Route: 014
  2. MARCAINE [Suspect]
     Dosage: 0.25%
  3. SIMVASTATIN [Concomitant]

REACTIONS (1)
  - INJECTION SITE INFECTION [None]
